FAERS Safety Report 15203163 (Version 1)
Quarter: 2018Q3

REPORT INFORMATION
  Report Type: Spontaneous
  Country: JP (occurrence: JP)
  Receive Date: 20180726
  Receipt Date: 20180726
  Transmission Date: 20181010
  Serious: Yes (Death, Other)
  Sender: FDA-Public Use
  Company Number: JP-SA-2018SA175514

PATIENT
  Age: 58 Year
  Sex: Male

DRUGS (1)
  1. ZOLPIDEM TARTRATE. [Suspect]
     Active Substance: ZOLPIDEM TARTRATE
     Indication: INSOMNIA
     Dosage: UNK UNK, UNK
     Route: 048
     Dates: end: 201806

REACTIONS (2)
  - Death [Fatal]
  - Disinhibition [Recovering/Resolving]

NARRATIVE: CASE EVENT DATE: 20180618
